FAERS Safety Report 5168399-9 (Version None)
Quarter: 2006Q4

REPORT INFORMATION
  Report Type: 
  Country: None (occurrence: None)
  Receive Date: 20061208
  Receipt Date: 20061130
  Transmission Date: 20070319
  Serious: Yes (Hospitalization)
  Sender: FDA-Public Use
  Company Number: GB-ROCHE-473186

PATIENT
  Age: 65 Year
  Sex: Male

DRUGS (5)
  1. CAPECITABINE [Suspect]
     Dosage: 1000 MG/M2 TWICE DAILY ON DAYS 1-14 REPEATED EVERY 3 WEEKS AS REPORTED.
     Route: 048
     Dates: start: 20060907
  2. OXALIPLATIN [Suspect]
     Dosage: 130 MG/M2 OVER 2 HOURS ON DAY 1 OF A CYCLE AS REPORTED.
     Route: 042
     Dates: start: 20060907
  3. CETUXIMAB [Suspect]
     Dosage: LOADING DOSE.
     Route: 042
  4. CETUXIMAB [Suspect]
     Route: 042
  5. LOPERAMIDE [Concomitant]
     Dates: start: 20060615

REACTIONS (1)
  - CYTOKINE RELEASE SYNDROME [None]
